FAERS Safety Report 8488023-7 (Version None)
Quarter: 2012Q3

REPORT INFORMATION
  Report Type: 
  Country: None (occurrence: None)
  Receive Date: 20120705
  Receipt Date: 20120701
  Transmission Date: 20120928
  Serious: Yes (Other)
  Sender: FDA-Public Use
  Company Number: PHFR2012GB003810

PATIENT
  Age: 17 Year
  Sex: Male

DRUGS (2)
  1. EXJADE [Suspect]
     Dosage: UNK UKN, UNK
  2. EXJADE [Suspect]
     Indication: IRON OVERLOAD
     Dosage: 32 MG/KG, DAILY

REACTIONS (10)
  - MALAISE [None]
  - BACK PAIN [None]
  - DEHYDRATION [None]
  - BLOOD CREATININE INCREASED [None]
  - HEPATIC FUNCTION ABNORMAL [None]
  - VIRAL PHARYNGITIS [None]
  - PROTEINURIA [None]
  - RENAL IMPAIRMENT [None]
  - FLUID INTAKE REDUCED [None]
  - TESTICULAR PAIN [None]
